FAERS Safety Report 8620296-X (Version None)
Quarter: 2012Q3

REPORT INFORMATION
  Report Type: 
  Country: None (occurrence: None)
  Receive Date: 20120817
  Receipt Date: 20120817
  Transmission Date: 20120928
  Serious: No
  Sender: FDA-Public Use
  Company Number: None

PATIENT
  Sex: Female

DRUGS (1)
  1. XELODA [Suspect]
     Indication: BREAST CANCER
     Dosage: 2000MG BID X7 DAYS ON, 7 DAYS ORALLY
     Route: 048
     Dates: start: 20120323

REACTIONS (2)
  - SPEECH DISORDER [None]
  - GAIT DISTURBANCE [None]
